FAERS Safety Report 16456076 (Version 1)
Quarter: 2019Q2

REPORT INFORMATION
  Report Type: Report from Study
  Country: BR (occurrence: BR)
  Receive Date: 20190620
  Receipt Date: 20190620
  Transmission Date: 20190711
  Serious: Yes (Other)
  Sender: FDA-Public Use
  Company Number: BR-BRISTOL-MYERS SQUIBB COMPANY-BMS-2017-105757

PATIENT
  Sex: Female

DRUGS (4)
  1. CITALOPRAM [Concomitant]
     Active Substance: CITALOPRAM HYDROBROMIDE
     Indication: PRODUCT USED FOR UNKNOWN INDICATION
     Route: 065
  2. CALCIUM [Concomitant]
     Active Substance: CALCIUM
     Indication: PRODUCT USED FOR UNKNOWN INDICATION
     Dosage: UNK
     Route: 065
     Dates: start: 201709
  3. RIVOTRIL [Concomitant]
     Active Substance: CLONAZEPAM
     Indication: PRODUCT USED FOR UNKNOWN INDICATION
     Route: 065
  4. ABATACEPT [Suspect]
     Active Substance: ABATACEPT
     Indication: RHEUMATOID ARTHRITIS
     Dosage: 125 MG, QWK
     Route: 058
     Dates: start: 201709

REACTIONS (11)
  - Abdominal pain upper [Unknown]
  - Laboratory test abnormal [Unknown]
  - Joint swelling [Unknown]
  - Fatigue [Unknown]
  - Adverse event [Unknown]
  - Drug ineffective [Unknown]
  - Cholelithiasis [Unknown]
  - Abdominal distension [Unknown]
  - Arthralgia [Unknown]
  - Pain [Unknown]
  - Depressive symptom [Unknown]

NARRATIVE: CASE EVENT DATE: 2019
